FAERS Safety Report 5939377-4 (Version None)
Quarter: 2008Q4

REPORT INFORMATION
  Report Type: 
  Country: None (occurrence: None)
  Receive Date: 20081103
  Receipt Date: 20081028
  Transmission Date: 20090506
  Serious: No
  Sender: FDA-Public Use
  Company Number: US-B.I. PHARMACEUTICALS,INC./RIDGEFIELD-2008-BP-12222BP

PATIENT
  Age: 74 Year
  Sex: Female

DRUGS (7)
  1. SPIRIVA [Suspect]
     Indication: BRONCHITIS CHRONIC
     Dosage: 18MCG
     Route: 055
     Dates: start: 20050101
  2. SPIRIVA [Suspect]
     Indication: DYSPNOEA
  3. ATENOLOL [Concomitant]
     Indication: HYPERTENSION
     Route: 048
  4. TRAMADOL HCL [Concomitant]
     Indication: ARTHRITIS
     Route: 048
  5. PREDNISONE TAB [Concomitant]
     Indication: BRONCHITIS
     Route: 048
  6. ALBUTEROL [Concomitant]
     Indication: BRONCHITIS
     Route: 055
  7. SYMBICORT [Concomitant]
     Indication: BRONCHITIS
     Route: 055

REACTIONS (2)
  - DYSPNOEA [None]
  - PULMONARY CONGESTION [None]
